FAERS Safety Report 13453986 (Version 1)
Quarter: 2017Q2

REPORT INFORMATION
  Report Type: Spontaneous
  Country: US (occurrence: US)
  Receive Date: 20170418
  Receipt Date: 20170418
  Transmission Date: 20170830
  Serious: No
  Sender: FDA-Public Use
  Company Number: US-ALLERGAN-1676613US

PATIENT
  Sex: Female
  Weight: 46.71 kg

DRUGS (3)
  1. LATISSE [Suspect]
     Active Substance: BIMATOPROST
     Indication: GROWTH OF EYELASHES
     Dosage: 2 GTT, QD
     Route: 061
     Dates: start: 20161101, end: 20161115
  2. LATISSE [Suspect]
     Active Substance: BIMATOPROST
     Dosage: 2 GTT, QD
     Route: 061
     Dates: start: 20161101, end: 20161115
  3. TAGAMET [Concomitant]
     Active Substance: CIMETIDINE
     Indication: GASTROOESOPHAGEAL REFLUX DISEASE
     Route: 065

REACTIONS (1)
  - Madarosis [Recovered/Resolved]
